FAERS Safety Report 19309772 (Version 1)
Quarter: 2021Q2

REPORT INFORMATION
  Report Type: Report from Study
  Country: AR (occurrence: AR)
  Receive Date: 20210526
  Receipt Date: 20210526
  Transmission Date: 20210717
  Serious: Yes (Life-Threatening, Other)
  Sender: FDA-Public Use
  Company Number: AR-TAKEDA-2021TUS033253

PATIENT
  Age: 47 Year
  Sex: Female

DRUGS (2)
  1. ICATIBANT [Suspect]
     Active Substance: ICATIBANT ACETATE
     Indication: HEREDITARY ANGIOEDEMA
     Dosage: 30MG/3ML, PRN
     Route: 058
     Dates: start: 2017
  2. ICATIBANT [Suspect]
     Active Substance: ICATIBANT ACETATE
     Indication: HEREDITARY ANGIOEDEMA
     Dosage: 30MG/3ML, PRN
     Route: 058
     Dates: start: 2017

REACTIONS (3)
  - Feeling abnormal [Recovered/Resolved]
  - Dyspnoea [Recovered/Resolved]
  - Pleurisy [Recovered/Resolved]

NARRATIVE: CASE EVENT DATE: 20210509
